FAERS Safety Report 9493279 (Version 2)
Quarter: 2013Q3

REPORT INFORMATION
  Report Type: Report from Study
  Country: CN (occurrence: CN)
  Receive Date: 20130902
  Receipt Date: 20130902
  Transmission Date: 20140515
  Serious: Yes (Hospitalization)
  Sender: FDA-Public Use
  Company Number: PHHO2011CN16126

PATIENT
  Age: 54 Year
  Sex: Female
  Weight: 78 kg

DRUGS (7)
  1. ALISKIREN [Suspect]
     Indication: CARDIOVASCULAR DISORDER
     Route: 048
     Dates: start: 20090604, end: 20110916
  2. NOVOLIN 30R [Concomitant]
     Indication: DIABETES MELLITUS
     Dosage: 52 U, UNK
     Dates: start: 2007
  3. METFORMIN [Concomitant]
     Indication: DIABETES MELLITUS
     Dosage: 0.5 U, TID
     Route: 048
     Dates: start: 2007, end: 20110904
  4. IRBESARTAN [Concomitant]
     Indication: HYPERTENSION
     Dosage: 150 MG, QD
     Route: 048
     Dates: start: 20090608, end: 20110904
  5. BISOPROLOL [Concomitant]
     Indication: HYPERTENSION
     Dosage: 5 MG, QD
     Route: 048
     Dates: start: 20090608, end: 20110904
  6. AMLODIPINE [Concomitant]
     Indication: HYPERTENSION
     Dosage: 2.5 MG, QD
     Route: 048
     Dates: start: 20090608, end: 20110904
  7. SIMVASTATIN [Concomitant]
     Indication: DYSLIPIDAEMIA
     Dosage: 10 MG, QD
     Route: 048
     Dates: start: 20110606, end: 20110904

REACTIONS (2)
  - Renal impairment [Recovering/Resolving]
  - Diabetes mellitus [Recovering/Resolving]
